FAERS Safety Report 12326231 (Version 1)
Quarter: 2016Q2

REPORT INFORMATION
  Report Type: Spontaneous
  Country: US (occurrence: None)
  Receive Date: 20160502
  Receipt Date: 20160502
  Transmission Date: 20160815
  Serious: Yes (Disabling)
  Sender: FDA-Public Use
  Company Number: None

PATIENT
  Age: 50 Year
  Sex: Female
  Weight: 86.18 kg

DRUGS (11)
  1. ASPIRIN. [Concomitant]
     Active Substance: ASPIRIN
  2. METOPROLOL. [Concomitant]
     Active Substance: METOPROLOL
  3. MIRAPEX [Concomitant]
     Active Substance: PRAMIPEXOLE DIHYDROCHLORIDE
  4. TRIHEXYPHENIDYL [Suspect]
     Active Substance: TRIHEXYPHENIDYL
     Indication: TARDIVE DYSKINESIA
     Route: 048
  5. HYDROCODONE BITARTRATE AND ACETAMINOPHEN [Concomitant]
     Active Substance: ACETAMINOPHEN\HYDROCODONE BITARTRATE
  6. IRON [Concomitant]
     Active Substance: IRON
  7. FLEXERIL [Concomitant]
     Active Substance: CYCLOBENZAPRINE HYDROCHLORIDE
  8. SYNTHROID [Concomitant]
     Active Substance: LEVOTHYROXINE SODIUM
  9. DUEXIS [Concomitant]
     Active Substance: FAMOTIDINE\IBUPROFEN
  10. CLONAZEPAM. [Concomitant]
     Active Substance: CLONAZEPAM
  11. PROZAC [Concomitant]
     Active Substance: FLUOXETINE HYDROCHLORIDE

REACTIONS (17)
  - Sleep talking [None]
  - Aphasia [None]
  - Impaired work ability [None]
  - Panic attack [None]
  - Derealisation [None]
  - Somnambulism [None]
  - Confusional state [None]
  - Poor personal hygiene [None]
  - Dysphemia [None]
  - Stress [None]
  - Chest pain [None]
  - Abnormal behaviour [None]
  - Cognitive disorder [None]
  - Abnormal sleep-related event [None]
  - Dry mouth [None]
  - Memory impairment [None]
  - Dyskinesia [None]

NARRATIVE: CASE EVENT DATE: 20160308
